FAERS Safety Report 7311468-5 (Version None)
Quarter: 2011Q1

REPORT INFORMATION
  Report Type: 
  Country: None (occurrence: None)
  Receive Date: 20110216
  Receipt Date: 20110216
  Transmission Date: 20110831
  Serious: Yes (Life-Threatening, Hospitalization)
  Sender: FDA-Public Use
  Company Number: None

PATIENT
  Age: 39 Year
  Sex: Female
  Weight: 91.4 kg

DRUGS (1)
  1. LEXAPRO [Suspect]
     Indication: STRESS
     Dosage: 5MG DAILY PO
     Route: 048
     Dates: start: 20110116, end: 20110207

REACTIONS (11)
  - RASH [None]
  - PRURITUS [None]
  - AUTOIMMUNE DISORDER [None]
  - THYROID DISORDER [None]
  - SWOLLEN TONGUE [None]
  - ANXIETY [None]
  - ANGIOEDEMA [None]
  - INFECTION [None]
  - FORMICATION [None]
  - URTICARIA [None]
  - ENDOCRINE DISORDER [None]
